FAERS Safety Report 12730485 (Version 2)
Quarter: 2016Q3

REPORT INFORMATION
  Report Type: Spontaneous
  Country: US (occurrence: US)
  Receive Date: 20160909
  Receipt Date: 20160926
  Transmission Date: 20161109
  Serious: No
  Sender: FDA-Public Use
  Company Number: US-TEVA-685657ACC

PATIENT
  Age: 31 Year
  Sex: Female
  Weight: 108.51 kg

DRUGS (3)
  1. PRENATAL VITAMINS [Concomitant]
     Active Substance: VITAMINS
  2. JANUVIA [Concomitant]
     Active Substance: SITAGLIPTIN PHOSPHATE
     Indication: DIABETES MELLITUS
  3. PLAN B ONE-STEP [Suspect]
     Active Substance: LEVONORGESTREL
     Indication: POST COITAL CONTRACEPTION
     Dates: start: 20160701, end: 20160701

REACTIONS (7)
  - Weight increased [Unknown]
  - Menstruation irregular [Recovered/Resolved]
  - Skin disorder [Unknown]
  - Dysmenorrhoea [Not Recovered/Not Resolved]
  - Menstruation delayed [Not Recovered/Not Resolved]
  - Menorrhagia [Recovered/Resolved]
  - Vaginal haemorrhage [Recovered/Resolved]

NARRATIVE: CASE EVENT DATE: 20160715
